FAERS Safety Report 4375499-X (Version None)
Quarter: 2004Q2

REPORT INFORMATION
  Report Type: 
  Country: None (occurrence: None)
  Receive Date: 20040607
  Receipt Date: 20040526
  Transmission Date: 20050107
  Serious: Yes (Other)
  Sender: FDA-Public Use
  Company Number: 2004005834

PATIENT
  Sex: Female

DRUGS (3)
  1. BEN-GAY ULTRA (CAMPHOR, MENTHOL, METHYL SALICYLATE) [Suspect]
     Dates: start: 20040105, end: 20040105
  2. LANSOPRAZOLE [Concomitant]
  3. CONJUGATED ESTROGENS [Concomitant]

REACTIONS (5)
  - BLISTER [None]
  - BURNING SENSATION [None]
  - DISCOMFORT [None]
  - PRURITUS [None]
  - URTICARIA [None]
